FAERS Safety Report 24650628 (Version 1)
Quarter: 2024Q4

REPORT INFORMATION
  Report Type: Spontaneous
  Country: ES (occurrence: ES)
  Receive Date: 20241122
  Receipt Date: 20241122
  Transmission Date: 20250114
  Serious: Yes (Hospitalization)
  Sender: TEVA
  Company Number: None

PATIENT
  Age: 86 Year
  Sex: Male

DRUGS (9)
  1. ENALAPRIL [Suspect]
     Active Substance: ENALAPRIL
     Indication: Hypertension
     Dosage: DECE; ENALAPRIL (2142A)
     Route: 048
     Dates: start: 20230929, end: 20231017
  2. VENLAFAXINE [Concomitant]
     Active Substance: VENLAFAXINE HYDROCHLORIDE
     Indication: Dementia Alzheimer^s type
     Dosage: DE ; VENLAFAXINE RETARD CINFAMED  EFG, 30 CAPSULES
     Route: 048
     Dates: start: 20091216
  3. ATROVENT [Concomitant]
     Active Substance: IPRATROPIUM BROMIDE
     Indication: Bronchitis chronic
     Dosage: DECOCE ; SOLUTION FOR INHALATION IN PRESSURE CONTAINER, 1 INHALER OF 200 DOSES
     Route: 065
     Dates: start: 20230929
  4. CALCIFEDIOL [Concomitant]
     Active Substance: CALCIFEDIOL
     Indication: Spinal osteoarthritis
     Dosage: 10 CAPSULES (PVC/PVDC-ALUMINUM BLISTER)
     Route: 048
     Dates: start: 20180307
  5. PARACETAMOL CINFA [Concomitant]
     Indication: Pain
     Dosage: DECOCE ; EFG , 40 TABLETS
     Route: 048
     Dates: start: 20230929
  6. QUETIAPINE FUMARATE [Concomitant]
     Active Substance: QUETIAPINE FUMARATE
     Indication: Dementia Alzheimer^s type
     Dosage: DE ; 60 TABLETS
     Route: 048
     Dates: start: 20230930
  7. SPIRONOLACTONE [Suspect]
     Active Substance: SPIRONOLACTONE
     Indication: Hypertension
     Dosage: DECE ; ESPIRONOLACTONA (326A)
     Route: 048
     Dates: start: 20230929, end: 20231015
  8. ELIQUIS [Concomitant]
     Active Substance: APIXABAN
     Indication: Atrial fibrillation
     Dosage: 60 TABLETS
     Route: 048
     Dates: start: 20230929
  9. ESOMEPRAZOLE SODIUM [Concomitant]
     Active Substance: ESOMEPRAZOLE SODIUM
     Indication: Product used for unknown indication
     Dosage: DE ; 4 EFG, 56 TABLETS (BLISTER)
     Route: 048
     Dates: start: 20230930

REACTIONS (2)
  - Hyperkalaemia [Recovered/Resolved]
  - Drug interaction [Recovered/Resolved]

NARRATIVE: CASE EVENT DATE: 20231015
